FAERS Safety Report 16135165 (Version 2)
Quarter: 2019Q2

REPORT INFORMATION
  Report Type: Report from Study
  Country: US (occurrence: US)
  Receive Date: 20190329
  Receipt Date: 20190425
  Transmission Date: 20190711
  Serious: Yes (Other)
  Sender: FDA-Public Use
  Company Number: US-BAUSCH-BL-2019-009546

PATIENT
  Age: 57 Year
  Sex: Male

DRUGS (2)
  1. SILIQ [Suspect]
     Active Substance: BRODALUMAB
     Route: 058
  2. SILIQ [Suspect]
     Active Substance: BRODALUMAB
     Indication: PSORIASIS
     Dosage: WEEKS 0,1 AND 2 AS DIRECTED
     Route: 058

REACTIONS (5)
  - Hand fracture [Unknown]
  - Fall [Unknown]
  - Psoriasis [Unknown]
  - Disease recurrence [Unknown]
  - Inappropriate schedule of product administration [Unknown]

NARRATIVE: CASE EVENT DATE: 20190202
